FAERS Safety Report 5468601-X (Version None)
Quarter: 2007Q3

REPORT INFORMATION
  Report Type: 
  Country: None (occurrence: None)
  Receive Date: 20070926
  Receipt Date: 20070914
  Transmission Date: 20080115
  Serious: Yes (Death)
  Sender: FDA-Public Use
  Company Number: JP-ROCHE-464710

PATIENT
  Age: 73 Year
  Sex: Female
  Weight: 45 kg

DRUGS (11)
  1. ROCEPHIN [Suspect]
     Indication: PNEUMONIA
     Dosage: REPORTED AS ROCEPHIN 1G BAG.
     Route: 041
     Dates: start: 20060314, end: 20060323
  2. FUNGUARD [Concomitant]
     Route: 041
     Dates: start: 20060313, end: 20060323
  3. REMINARON [Concomitant]
     Route: 041
     Dates: start: 20060322
  4. PREDNISOLONE [Concomitant]
     Dates: start: 20060223
  5. FAMOTIDINE [Concomitant]
  6. TICLOPIDINE HCL [Concomitant]
     Route: 048
     Dates: start: 20060228, end: 20060301
  7. ASPIRIN [Concomitant]
     Route: 048
     Dates: start: 20060303
  8. CAMOSTAT MESILATE [Concomitant]
     Dosage: DRUG NAME REPORTED AS KAMOSTAAL.
     Route: 048
     Dates: start: 20060303
  9. FUNGIZONE [Concomitant]
     Route: 042
     Dates: start: 20060313
  10. FUNGIZONE [Concomitant]
     Dosage: DOSE FORM: GARGLE. ROUTE: OROPHARINGEAL.
     Route: 048
     Dates: start: 20060313
  11. REMINARON [Concomitant]
     Route: 041
     Dates: start: 20060322

REACTIONS (2)
  - RENAL TUBULAR ACIDOSIS [None]
  - SHOCK [None]
